FAERS Safety Report 7399299-1 (Version None)
Quarter: 2011Q1

REPORT INFORMATION
  Report Type: 
  Country: None (occurrence: None)
  Receive Date: 20110301
  Receipt Date: 20100330
  Transmission Date: 20110831
  Serious: Yes (Hospitalization)
  Sender: FDA-Public Use
  Company Number: RB-05818-2010

PATIENT
  Sex: Female

DRUGS (7)
  1. SUBOXONE [Suspect]
     Indication: HEADACHE
     Dosage: (2 MG QID SUBLINGUAL), (2 MG QID SUBLINGUAL), (2 MG QID SUBLINGUAL)
     Route: 060
     Dates: start: 20090601, end: 20091224
  2. SUBOXONE [Suspect]
     Indication: DRUG DEPENDENCE
     Dosage: (2 MG QID SUBLINGUAL), (2 MG QID SUBLINGUAL), (2 MG QID SUBLINGUAL)
     Route: 060
     Dates: start: 20090601, end: 20091224
  3. SUBOXONE [Suspect]
     Indication: HEADACHE
     Dosage: (2 MG QID SUBLINGUAL), (2 MG QID SUBLINGUAL), (2 MG QID SUBLINGUAL)
     Route: 060
     Dates: start: 20090201, end: 20090401
  4. SUBOXONE [Suspect]
     Indication: DRUG DEPENDENCE
     Dosage: (2 MG QID SUBLINGUAL), (2 MG QID SUBLINGUAL), (2 MG QID SUBLINGUAL)
     Route: 060
     Dates: start: 20090201, end: 20090401
  5. SUBOXONE [Suspect]
     Indication: HEADACHE
     Dosage: (2 MG QID SUBLINGUAL), (2 MG QID SUBLINGUAL), (2 MG QID SUBLINGUAL)
     Route: 060
     Dates: start: 20100115, end: 20100120
  6. SUBOXONE [Suspect]
     Indication: DRUG DEPENDENCE
     Dosage: (2 MG QID SUBLINGUAL), (2 MG QID SUBLINGUAL), (2 MG QID SUBLINGUAL)
     Route: 060
     Dates: start: 20100115, end: 20100120
  7. ATENOLOL [Concomitant]

REACTIONS (7)
  - AFFECTIVE DISORDER [None]
  - TREMOR [None]
  - HEADACHE [None]
  - DRUG WITHDRAWAL SYNDROME [None]
  - INSOMNIA [None]
  - ANXIETY [None]
  - DEPRESSION [None]
